FAERS Safety Report 4319959-6 (Version None)
Quarter: 2004Q1

REPORT INFORMATION
  Report Type: 
  Country: None (occurrence: None)
  Receive Date: 20040316
  Receipt Date: 20040303
  Transmission Date: 20041129
  Serious: Yes (Hospitalization)
  Sender: FDA-Public Use
  Company Number: USA031050702

PATIENT
  Age: 80 Year
  Sex: Female
  Weight: 53 kg

DRUGS (12)
  1. FORTEO [Suspect]
     Indication: OSTEOPOROSIS
     Dosage: 20 UG/1 DAY
     Dates: start: 20030505
  2. ELAVIL (AMITRIPRYLINE HYDROCHLORIDE) [Concomitant]
  3. MIRALAX [Concomitant]
  4. LIPITOR [Concomitant]
  5. SYNTHROID [Concomitant]
  6. ASTELIN [Concomitant]
  7. BECONASE (BECLOMETASONE DIPROPIONATE) [Concomitant]
  8. SINGULAIR [Concomitant]
  9. COMBIVENT [Concomitant]
  10. ASPIRIN [Concomitant]
  11. HYDROCHLOROTIAZIDE [Concomitant]
  12. FOLIC ACID [Concomitant]

REACTIONS (10)
  - ASTHENIA [None]
  - BLOOD GLUCOSE DECREASED [None]
  - BURNING SENSATION [None]
  - DIFFICULTY IN WALKING [None]
  - DIZZINESS [None]
  - FALL [None]
  - FEELING ABNORMAL [None]
  - HYPERHIDROSIS [None]
  - NAUSEA [None]
  - SKELETAL INJURY [None]
